FAERS Safety Report 8015811-3 (Version None)
Quarter: 2011Q4

REPORT INFORMATION
  Report Type: 
  Country: None (occurrence: None)
  Receive Date: 20111230
  Receipt Date: 20111223
  Transmission Date: 20120403
  Serious: Yes (Other)
  Sender: FDA-Public Use
  Company Number: US-ROCHE-801880

PATIENT
  Sex: Male
  Weight: 49.94 kg

DRUGS (1)
  1. ACCUTANE [Suspect]
     Indication: ACNE
     Route: 048
     Dates: start: 19960919, end: 19970227

REACTIONS (3)
  - COLITIS ULCERATIVE [None]
  - PROCTITIS ULCERATIVE [None]
  - SMALL INTESTINAL OBSTRUCTION [None]
